FAERS Safety Report 4485582-6 (Version None)
Quarter: 2004Q4

REPORT INFORMATION
  Report Type: 
  Country: None (occurrence: None)
  Receive Date: 20041021
  Receipt Date: 20041005
  Transmission Date: 20050328
  Serious: No
  Sender: FDA-Public Use
  Company Number: D01200402438

PATIENT
  Age: 49 Year
  Sex: Female

DRUGS (12)
  1. RASBURICASE - SOLUTION - 0.2 MG/KG [Suspect]
     Indication: HYPERURICAEMIA
     Dosage: 19.9 MG QD INTRAVENOUS NOS
     Route: 042
     Dates: start: 20040616, end: 20040620
  2. CYTARABINE [Suspect]
  3. MYLOTARG [Concomitant]
  4. SULFAMETHOXAZOLE [Concomitant]
  5. COREG [Concomitant]
  6. ALTACE [Concomitant]
  7. COUMADIN [Concomitant]
  8. PROTONIX [Concomitant]
  9. FOLIC ACID [Concomitant]
  10. CIPROFLOXACIN [Concomitant]
  11. SPORANOX [Concomitant]
  12. ACYCLOVIR [Concomitant]

REACTIONS (13)
  - ALANINE AMINOTRANSFERASE INCREASED [None]
  - ASCITES [None]
  - ASPARTATE AMINOTRANSFERASE INCREASED [None]
  - BLOOD BILIRUBIN INCREASED [None]
  - ELECTROCARDIOGRAM ABNORMAL [None]
  - FLATULENCE [None]
  - GALLBLADDER DISORDER [None]
  - GAMMA-GLUTAMYLTRANSFERASE INCREASED [None]
  - ILEUS [None]
  - INTERNATIONAL NORMALISED RATIO INCREASED [None]
  - INTESTINAL OBSTRUCTION [None]
  - STAPHYLOCOCCAL BACTERAEMIA [None]
  - X-RAY GASTROINTESTINAL TRACT ABNORMAL [None]
